FAERS Safety Report 9098034 (Version 2)
Quarter: 2013Q2

REPORT INFORMATION
  Report Type: Spontaneous
  Country: AU (occurrence: AU)
  Receive Date: 20130212
  Receipt Date: 20130607
  Transmission Date: 20140414
  Serious: Yes (Hospitalization, Other)
  Sender: FDA-Public Use
  Company Number: AU-009507513-1302AUS002550

PATIENT
  Age: 84 Year
  Sex: Male

DRUGS (12)
  1. SIMVASTATIN [Suspect]
     Dosage: 40 MG, QD
     Route: 048
  2. COLCHICINE [Interacting]
     Indication: GOUT
     Dosage: 1 MG, QD
  3. COLCHICINE [Interacting]
     Dosage: 0.5 MG DAILY
  4. EZETIMIB [Concomitant]
     Dosage: 20 MG DAILY
  5. AMLODIPINE [Concomitant]
  6. IRBESARTAN [Concomitant]
  7. HYDROCHLOROTHIAZIDE [Concomitant]
  8. CLOPIDOGREL [Concomitant]
  9. RABEPRAZOLE SODIUM [Concomitant]
  10. OXYCODONE HYDROCHLORIDE [Concomitant]
  11. FLUTICASONE PROPIONATE (+) SALMETEROL XINAFOATE [Concomitant]
     Indication: ASTHMA
  12. PREDNISOLONE [Concomitant]
     Indication: ASTHMA
     Dosage: 5 MG DAILY

REACTIONS (9)
  - Functional gastrointestinal disorder [Recovering/Resolving]
  - Dysphagia [Recovering/Resolving]
  - Colonic pseudo-obstruction [Recovering/Resolving]
  - Drug interaction [Recovering/Resolving]
  - Myopathy [Recovering/Resolving]
  - Myalgia [Recovering/Resolving]
  - Blood creatine phosphokinase increased [Recovering/Resolving]
  - Muscular weakness [Recovering/Resolving]
  - Myoglobinuria [Recovering/Resolving]
